FAERS Safety Report 7568667-7 (Version None)
Quarter: 2011Q2

REPORT INFORMATION
  Report Type: 
  Country: None (occurrence: None)
  Receive Date: 20110623
  Receipt Date: 20110620
  Transmission Date: 20111010
  Serious: Yes (Other)
  Sender: FDA-Public Use
  Company Number: US-BRISTOL-MYERS SQUIBB COMPANY-13446661

PATIENT
  Age: 81 Year
  Sex: Female
  Weight: 88 kg

DRUGS (10)
  1. FISH OIL [Concomitant]
  2. ASPIRIN [Concomitant]
     Dates: start: 20050301
  3. HYDROCHLOROTHIAZIDE [Concomitant]
  4. GLUCOSAMINE [Concomitant]
     Dates: start: 20060712
  5. TYLENOL-500 [Concomitant]
  6. VITAMIN D [Concomitant]
  7. COUMADIN [Suspect]
     Indication: ATRIAL FIBRILLATION
     Dosage: SINCE 2006,2MG TABS;PO;FIVE NIGHTS A WEEK 4MG TAB;PO;2 NIGHTS A WEEK,STOPPED ON 14JUN11 FOR 6 DAYS
     Route: 048
     Dates: start: 20060101
  8. TOPROL-XL [Concomitant]
     Dates: start: 20050301
  9. CELLCEPT [Concomitant]
  10. TOPROL-XL [Concomitant]

REACTIONS (7)
  - CONTUSION [None]
  - WEIGHT INCREASED [None]
  - DYSPNOEA [None]
  - INTERNATIONAL NORMALISED RATIO FLUCTUATION [None]
  - NEOPLASM [None]
  - JOINT SWELLING [None]
  - OEDEMA PERIPHERAL [None]
